FAERS Safety Report 7929540-5 (Version None)
Quarter: 2011Q4

REPORT INFORMATION
  Report Type: 
  Country: None (occurrence: None)
  Receive Date: 20111121
  Receipt Date: 20111108
  Transmission Date: 20120403
  Serious: Yes (Hospitalization)
  Sender: FDA-Public Use
  Company Number: BE-JNJFOC-20111012717

PATIENT
  Age: 53 Year
  Sex: Female

DRUGS (5)
  1. TETRAZEPAM [Concomitant]
     Route: 065
  2. FOLIC ACID [Concomitant]
     Route: 065
  3. QUESTRAN [Concomitant]
     Route: 065
  4. REMICADE [Suspect]
     Indication: CROHN'S DISEASE
     Route: 042
     Dates: start: 20081201, end: 20110816
  5. EFFEXOR [Concomitant]
     Route: 065

REACTIONS (11)
  - HEPATIC STEATOSIS [None]
  - DYSKINESIA [None]
  - HEADACHE [None]
  - ASTHENIA [None]
  - APHASIA [None]
  - FATIGUE [None]
  - CALCULUS URETERIC [None]
  - CEREBRAL ISCHAEMIA [None]
  - HAEMATURIA [None]
  - PRESYNCOPE [None]
  - VASCULITIS CEREBRAL [None]
